FAERS Safety Report 5042507-2 (Version None)
Quarter: 2006Q2

REPORT INFORMATION
  Report Type: 
  Country: None (occurrence: None)
  Receive Date: 20060627
  Receipt Date: 20060607
  Transmission Date: 20061013
  Serious: Yes (Death, Hospitalization)
  Sender: FDA-Public Use
  Company Number: 110898ISR

PATIENT
  Age: 72 Year
  Sex: Male

DRUGS (6)
  1. CISPLATIN [Suspect]
     Route: 042
     Dates: start: 20060327, end: 20060329
  2. FLUOROURACIL [Suspect]
     Route: 042
     Dates: start: 20060327, end: 20060329
  3. ACARBOSE [Concomitant]
  4. ACTOS [Concomitant]
  5. REPAGLINIDE [Concomitant]
  6. ONDANSETRON HCL [Concomitant]

REACTIONS (18)
  - ANAEMIA [None]
  - ANOREXIA [None]
  - ASTHENIA [None]
  - CARDIO-RESPIRATORY ARREST [None]
  - FEELING HOT [None]
  - GASTRIC ULCER HAEMORRHAGE [None]
  - GASTROINTESTINAL HAEMORRHAGE [None]
  - GENERAL PHYSICAL CONDITION ABNORMAL [None]
  - HYPERHIDROSIS [None]
  - LOSS OF CONSCIOUSNESS [None]
  - MALAISE [None]
  - NAUSEA [None]
  - RECTAL HAEMORRHAGE [None]
  - SHOCK HAEMORRHAGIC [None]
  - TACHYCARDIA [None]
  - THROMBOCYTOPENIA [None]
  - VERTIGO [None]
  - VOMITING [None]
